FAERS Safety Report 13017254 (Version 3)
Quarter: 2017Q1

REPORT INFORMATION
  Report Type: Spontaneous
  Country: GB (occurrence: GB)
  Receive Date: 20161212
  Receipt Date: 20170110
  Transmission Date: 20170428
  Serious: Yes (Other)
  Sender: FDA-Public Use
  Company Number: GB-PFIZER INC-2016569601

PATIENT
  Age: 24 Year
  Sex: Female

DRUGS (2)
  1. NAPROXEN SODIUM. [Suspect]
     Active Substance: NAPROXEN SODIUM
     Indication: DYSMENORRHOEA
     Dosage: 500 MG, AS NEEDED (TWICE A DAY)
     Route: 048
  2. IBUPROFEN. [Suspect]
     Active Substance: IBUPROFEN
     Indication: PAIN
     Dosage: 400 MG, AS NEEDED (THREE TIMES A DAY)
     Route: 048

REACTIONS (3)
  - Gastritis [Recovering/Resolving]
  - Duodenal ulcer [Recovering/Resolving]
  - Gastric ulcer [Recovering/Resolving]
